FAERS Safety Report 12943484 (Version 1)
Quarter: 2016Q4

REPORT INFORMATION
  Report Type: Spontaneous
  Country: US (occurrence: US)
  Receive Date: 20161115
  Receipt Date: 20161115
  Transmission Date: 20170207
  Serious: Yes (Hospitalization)
  Sender: FDA-Public Use
  Company Number: US-ROCHE-1667031

PATIENT
  Sex: Female

DRUGS (3)
  1. MAALOX (ALUMINUM HYDROXIDE/MAGNESIUM HYDROXIDE) [Concomitant]
  2. TAMIFLU [Suspect]
     Active Substance: OSELTAMIVIR PHOSPHATE
     Indication: INFLUENZA
     Route: 065
  3. PREDNISONE. [Concomitant]
     Active Substance: PREDNISONE

REACTIONS (4)
  - Rash [Recovered/Resolved]
  - Pneumonia [Recovered/Resolved]
  - Hypophagia [Recovered/Resolved]
  - Dyspepsia [Recovered/Resolved]
